FAERS Safety Report 8262059-3 (Version None)
Quarter: 2012Q2

REPORT INFORMATION
  Report Type: 
  Country: None (occurrence: None)
  Receive Date: 20120405
  Receipt Date: 20120327
  Transmission Date: 20120825
  Serious: Yes (Hospitalization)
  Sender: FDA-Public Use
  Company Number: PHHO2012CA005140

PATIENT
  Sex: Male
  Weight: 72.6 kg

DRUGS (2)
  1. GEMCITABINE [Suspect]
     Indication: BLADDER CANCER
  2. AFINITOR [Suspect]
     Indication: BLADDER CANCER
     Dosage: 5 MG, QD
     Route: 048
     Dates: start: 20120116, end: 20120310

REACTIONS (1)
  - GASTROENTERITIS RADIATION [None]
